FAERS Safety Report 5704086-3 (Version None)
Quarter: 2008Q2

REPORT INFORMATION
  Report Type: 
  Country: None (occurrence: None)
  Receive Date: 20080414
  Receipt Date: 20080404
  Transmission Date: 20081010
  Serious: Yes (Hospitalization)
  Sender: FDA-Public Use
  Company Number: FR-BRISTOL-MYERS SQUIBB COMPANY-14147847

PATIENT
  Age: 48 Year
  Sex: Male

DRUGS (2)
  1. GLUCOPHAGE [Suspect]
     Indication: DIABETES MELLITUS
     Dosage: INITIAL DOSE WAS PO 1500 MG, 1 DAY;
     Route: 048
  2. TERALITHE [Suspect]
     Indication: BIPOLAR DISORDER
     Dates: start: 20071201

REACTIONS (2)
  - ANTIPSYCHOTIC DRUG LEVEL INCREASED [None]
  - DIARRHOEA [None]
